FAERS Safety Report 6480253-9 (Version None)
Quarter: 2009Q4

REPORT INFORMATION
  Report Type: 
  Country: None (occurrence: None)
  Receive Date: 20091208
  Receipt Date: 20091201
  Transmission Date: 20100525
  Serious: Yes (Life-Threatening)
  Sender: FDA-Public Use
  Company Number: FR-CELGENEUS-056-C5013-09120225

PATIENT
  Sex: Female
  Weight: 43 kg

DRUGS (8)
  1. CC-5013 [Suspect]
     Indication: MULTIPLE MYELOMA
     Route: 048
     Dates: start: 20090807
  2. CC-5013 [Suspect]
     Route: 048
     Dates: start: 20090515
  3. DEXAMETHASONE [Suspect]
     Indication: MULTIPLE MYELOMA
     Route: 065
     Dates: start: 20090807
  4. DEXAMETHASONE [Suspect]
     Route: 065
     Dates: start: 20090515
  5. AMLODINE [Concomitant]
     Indication: HYPERTENSION
     Route: 048
     Dates: start: 19890101
  6. GLICLAZIDE [Concomitant]
     Route: 048
     Dates: start: 20050101
  7. PREVISCAN [Concomitant]
     Indication: THROMBOSIS PROPHYLAXIS
     Route: 048
     Dates: start: 20090515
  8. BACTRIM DS [Concomitant]
     Indication: INFECTION PROPHYLAXIS
     Route: 048
     Dates: start: 20090515

REACTIONS (1)
  - INTERNATIONAL NORMALISED RATIO INCREASED [None]
